FAERS Safety Report 6972306-3 (Version None)
Quarter: 2010Q3

REPORT INFORMATION
  Report Type: 
  Country: None (occurrence: None)
  Receive Date: 20100909
  Receipt Date: 20100827
  Transmission Date: 20110219
  Serious: Yes (Other)
  Sender: FDA-Public Use
  Company Number: PHHY2010DE27922

PATIENT
  Sex: Female
  Weight: 59 kg

DRUGS (8)
  1. EXJADE [Interacting]
     Indication: THALASSAEMIA BETA
     Dosage: 1750 MG/DAY
     Route: 048
     Dates: start: 20080105, end: 20100322
  2. EXJADE [Interacting]
     Dosage: 1500 MG/DAY
     Route: 048
  3. EXJADE [Interacting]
     Dosage: 1250 MG/DAY
     Route: 048
     Dates: start: 20100323
  4. NEXIUM [Suspect]
     Indication: PROPHYLAXIS AGAINST GASTROINTESTINAL ULCER
     Dosage: 20 MG/DAY
     Dates: start: 20080201, end: 20100326
  5. DILTIAZEM [Suspect]
     Indication: TACHYCARDIA
     Dosage: 180 MG/DAY
     Dates: start: 20091014
  6. MARCUMAR [Interacting]
     Indication: THROMBOSIS PROPHYLAXIS
     Dosage: AS NEEDED (QUICK)
     Dates: start: 19940901
  7. ASPIRIN [Concomitant]
     Indication: THROMBOSIS PROPHYLAXIS
     Dosage: 100 MG/DAY
     Dates: start: 20060203
  8. HYDROXYUREA [Interacting]
     Indication: PLATELET COUNT INCREASED

REACTIONS (9)
  - ABDOMINAL PAIN UPPER [None]
  - DRUG INTERACTION [None]
  - EYE SWELLING [None]
  - FLUID RETENTION [None]
  - MUSCLE SPASMS [None]
  - NAUSEA [None]
  - OEDEMA PERIPHERAL [None]
  - SWELLING FACE [None]
  - WEIGHT INCREASED [None]
